FAERS Safety Report 4999243-8 (Version None)
Quarter: 2006Q2

REPORT INFORMATION
  Report Type: 
  Country: None (occurrence: None)
  Receive Date: 20060509
  Receipt Date: 20060509
  Transmission Date: 20061013
  Serious: Yes (Hospitalization)
  Sender: FDA-Public Use
  Company Number: None

PATIENT
  Sex: Male
  Weight: 80 kg

DRUGS (2)
  1. CYTARABINE [Suspect]
     Indication: ACUTE MYELOID LEUKAEMIA
     Dosage: 935 MG
     Dates: start: 20060409
  2. DAUNORUBICIN [Suspect]
     Dosage: 224 MG
     Dates: start: 20060406

REACTIONS (5)
  - ACTIVITIES OF DAILY LIVING IMPAIRED [None]
  - ASTHENIA [None]
  - BED REST [None]
  - DECREASED APPETITE [None]
  - DEEP VEIN THROMBOSIS [None]
